FAERS Safety Report 4834761-4 (Version None)
Quarter: 2005Q4

REPORT INFORMATION
  Report Type: 
  Country: None (occurrence: None)
  Receive Date: 20051122
  Receipt Date: 20051110
  Transmission Date: 20060501
  Serious: Yes (Hospitalization)
  Sender: FDA-Public Use
  Company Number: PHRM2005FR02949

PATIENT
  Age: 45 Year
  Sex: Female
  Weight: 86 kg

DRUGS (7)
  1. TEGRETOL [Suspect]
     Indication: MYOCLONUS
     Dosage: 200 MG, BID
     Route: 048
     Dates: start: 20050922, end: 20051012
  2. EPITOMAX [Suspect]
     Dosage: 15 MG, QD
     Route: 048
     Dates: start: 20051013, end: 20051016
  3. KEPPRA [Suspect]
     Dosage: 500 MG, BID
     Route: 048
     Dates: start: 20051007
  4. LEVOTHYROX [Concomitant]
     Indication: HYPOTHYROIDISM
     Route: 048
  5. TARDYFERON [Concomitant]
     Indication: IRON DEFICIENCY
  6. RIVOTRIL [Concomitant]
     Route: 048
  7. EFFERALGAN [Concomitant]
     Route: 048

REACTIONS (8)
  - ASTHENIA [None]
  - CONVULSION [None]
  - GENERALISED ERYTHEMA [None]
  - HEADACHE [None]
  - LEUKOPENIA [None]
  - PYREXIA [None]
  - RASH MACULO-PAPULAR [None]
  - THROMBOCYTOPENIA [None]
